FAERS Safety Report 4377995-8 (Version None)
Quarter: 2004Q2

REPORT INFORMATION
  Report Type: 
  Country: None (occurrence: None)
  Receive Date: 20040616
  Receipt Date: 20040604
  Transmission Date: 20050107
  Serious: Yes (Other)
  Sender: FDA-Public Use
  Company Number: FR-BRISTOL-MYERS SQUIBB COMPANY-12606612

PATIENT
  Age: 58 Year
  Sex: Female

DRUGS (2)
  1. APROVEL TABS 300 MG [Suspect]
     Dosage: 300 MG DAILY FROM 2003 TO 01-JAN-2004 AND THEN 150 MG FROM 01-JAN-2004 AND STILL CONTINUING
     Route: 048
     Dates: start: 20030101
  2. ESTRADIOL [Concomitant]

REACTIONS (4)
  - ALANINE AMINOTRANSFERASE INCREASED [None]
  - ASPARTATE AMINOTRANSFERASE INCREASED [None]
  - GAMMA-GLUTAMYLTRANSFERASE INCREASED [None]
  - TINNITUS [None]
